FAERS Safety Report 5278642-3 (Version None)
Quarter: 2007Q1

REPORT INFORMATION
  Report Type: 
  Country: None (occurrence: None)
  Receive Date: 20070328
  Receipt Date: 20070314
  Transmission Date: 20070707
  Serious: Yes (Disabling)
  Sender: FDA-Public Use
  Company Number: AU-JNJFOC-20070304703

PATIENT
  Sex: Female

DRUGS (2)
  1. TRAMADOL HCL [Suspect]
     Indication: PAIN
     Route: 048
  2. ST JOHNS WORT [Concomitant]
     Route: 065

REACTIONS (5)
  - BALANCE DISORDER [None]
  - DYSPNOEA [None]
  - MYDRIASIS [None]
  - NAUSEA [None]
  - VISUAL DISTURBANCE [None]
